FAERS Safety Report 8065645 (Version 3)
Quarter: 2012Q4

REPORT INFORMATION
  Report Type: 
  Country: BF (occurrence: BF)
  Receive Date: 20110802
  Receipt Date: 20121031
  Transmission Date: 20130627
  Serious: Yes (Death)
  Sender: FDA-Public Use
  Company Number: PHHO2011BF12994

PATIENT
  Age: 2 Year
  Sex: Female

DRUGS (1)
  1. CGP 56697 [Suspect]
     Indication: MALARIA
     Dosage: 1 DF (20/120 mg), BID
     Route: 048
     Dates: start: 20110719

REACTIONS (1)
  - Malaria [Fatal]
